FAERS Safety Report 21119289 (Version 5)
Quarter: 2022Q4

REPORT INFORMATION
  Report Type: Spontaneous
  Country: US (occurrence: US)
  Receive Date: 20220722
  Receipt Date: 20221216
  Transmission Date: 20230113
  Serious: No
  Sender: FDA-Public Use
  Company Number: US-GLAXOSMITHKLINE-US2022108656

PATIENT
  Age: 57 Year
  Sex: Female

DRUGS (6)
  1. ZEJULA [Suspect]
     Active Substance: NIRAPARIB
     Indication: Ovarian cancer
     Dosage: 300 MG, QD
     Dates: start: 20220625
  2. ZEJULA [Suspect]
     Active Substance: NIRAPARIB
     Dosage: 200 MG, QD
  3. ZEJULA [Suspect]
     Active Substance: NIRAPARIB
     Dosage: 200 MG, QD
     Route: 048
  4. ZEJULA [Suspect]
     Active Substance: NIRAPARIB
     Dosage: 200 MG, QD
     Route: 048
  5. DILAUDID [Suspect]
     Active Substance: HYDROMORPHONE HYDROCHLORIDE
     Indication: Product used for unknown indication
     Dosage: UNK
     Route: 042
  6. NORCO [Suspect]
     Active Substance: ACETAMINOPHEN\HYDROCODONE BITARTRATE
     Indication: Product used for unknown indication
     Dosage: UNK

REACTIONS (19)
  - Heart rate increased [Not Recovered/Not Resolved]
  - Candida infection [Unknown]
  - Pain [Recovering/Resolving]
  - Illness [Unknown]
  - Vomiting [Unknown]
  - Abdominal discomfort [Unknown]
  - Insomnia [Unknown]
  - Dysphagia [Unknown]
  - Fatigue [Not Recovered/Not Resolved]
  - Blood pressure systolic increased [Recovered/Resolved]
  - Tongue discolouration [Not Recovered/Not Resolved]
  - Gingival discolouration [Unknown]
  - Oral mucosal discolouration [Unknown]
  - Red blood cell count abnormal [Unknown]
  - Vitamin B12 deficiency [Unknown]
  - Lower respiratory tract infection [Unknown]
  - Red blood cell count decreased [Unknown]
  - Blood alkaline phosphatase increased [Unknown]
  - Palliative care [Unknown]

NARRATIVE: CASE EVENT DATE: 20220804
